FAERS Safety Report 25566640 (Version 1)
Quarter: 2025Q3

REPORT INFORMATION
  Report Type: Spontaneous
  Country: US (occurrence: None)
  Receive Date: 20250716
  Receipt Date: 20250716
  Transmission Date: 20251020
  Serious: No
  Sender: FDA-CTU
  Company Number: None

PATIENT
  Age: 73 Year
  Sex: Female

DRUGS (2)
  1. ENBREL [Suspect]
     Active Substance: ETANERCEPT
     Indication: Rheumatoid arthritis
     Dates: start: 202503
  2. ENBREL [Suspect]
     Active Substance: ETANERCEPT
     Indication: Rheumatoid factor positive

REACTIONS (1)
  - Shoulder operation [None]
